FAERS Safety Report 8112118-0 (Version None)
Quarter: 2012Q1

REPORT INFORMATION
  Report Type: 
  Country: None (occurrence: None)
  Receive Date: 20120203
  Receipt Date: 20120130
  Transmission Date: 20120608
  Serious: Yes (Other)
  Sender: FDA-Public Use
  Company Number: NL-PFIZER INC-2011275055

PATIENT
  Age: 20 Year
  Sex: Female
  Weight: 56 kg

DRUGS (5)
  1. EZETIMIBE [Suspect]
     Indication: HYPERCHOLESTEROLAEMIA
     Dosage: 10 MG, UNK
     Route: 048
     Dates: start: 20070913, end: 20091218
  2. COLESEVELAM HYDROCHLORIDE [Suspect]
     Indication: HYPERCHOLESTEROLAEMIA
     Dosage: 2500 MG, UNK
     Route: 048
  3. ATORVASTATIN CALCIUM [Suspect]
     Indication: HYPERCHOLESTEROLAEMIA
     Dosage: 80 MG, UNK
     Route: 048
     Dates: start: 20051215, end: 20091218
  4. NORDETTE-28 [Concomitant]
     Indication: CONTRACEPTION
     Dosage: 1 DF, 1X/DAY
     Dates: start: 20040802, end: 20091218
  5. NORDETTE-28 [Concomitant]
     Dosage: 1 DF, 1X/DAY
     Route: 048
     Dates: start: 20100122

REACTIONS (1)
  - BLIGHTED OVUM [None]
